FAERS Safety Report 16364070 (Version 5)
Quarter: 2019Q4

REPORT INFORMATION
  Report Type: Spontaneous
  Country: JP (occurrence: JP)
  Receive Date: 20190528
  Receipt Date: 20191014
  Transmission Date: 20200122
  Serious: Yes (Death, Hospitalization)
  Sender: FDA-Public Use
  Company Number: JP-PFIZER INC-2019225886

PATIENT
  Age: 78 Year
  Sex: Female
  Weight: 33.3 kg

DRUGS (7)
  1. LOXONIN [Concomitant]
     Active Substance: LOXOPROFEN SODIUM
     Dosage: 180 MG, 3X/DAY
     Dates: start: 20190517, end: 20190524
  2. DAIPHEN [Concomitant]
     Active Substance: SULFAMETHOXAZOLE\TRIMETHOPRIM
     Dosage: 4 G, 3X/DAY
     Dates: start: 20190524, end: 20190525
  3. FEBURIC [Concomitant]
     Active Substance: FEBUXOSTAT
  4. IBRANCE [Suspect]
     Active Substance: PALBOCICLIB
     Indication: BREAST CANCER METASTATIC
     Dosage: 125 MG, 1X/DAY
     Route: 048
     Dates: start: 20190517, end: 20190524
  5. FASLODEX [Concomitant]
     Active Substance: FULVESTRANT
     Indication: BREAST CANCER METASTATIC
     Dosage: 500 MG, DAILY
     Route: 030
     Dates: start: 20190517, end: 20190524
  6. MUCOSTA [Concomitant]
     Active Substance: REBAMIPIDE
  7. CADEX [IODINE] [Concomitant]

REACTIONS (2)
  - Interstitial lung disease [Fatal]
  - Multiple organ dysfunction syndrome [Fatal]

NARRATIVE: CASE EVENT DATE: 20190524
